FAERS Safety Report 15492580 (Version 1)
Quarter: 2018Q4

REPORT INFORMATION
  Report Type: Spontaneous
  Country: US (occurrence: US)
  Receive Date: 20181004
  Receipt Date: 20181004
  Transmission Date: 20190205
  Serious: Yes (Death)
  Sender: FDA-Public Use
  Company Number: None

PATIENT
  Age: 64 Year
  Sex: Female

DRUGS (3)
  1. PROCHLORPERAZINE. [Concomitant]
     Active Substance: PROCHLORPERAZINE
  2. MULTIVITAMIN / TAB MINERALS [Concomitant]
  3. OCTREOTIDE. [Suspect]
     Active Substance: OCTREOTIDE
     Indication: OVARIAN CANCER
     Route: 042
     Dates: start: 20180912

REACTIONS (1)
  - Death [None]

NARRATIVE: CASE EVENT DATE: 20180923
